FAERS Safety Report 14961758 (Version 1)
Quarter: 2018Q2

REPORT INFORMATION
  Report Type: Spontaneous
  Country: FR (occurrence: FR)
  Receive Date: 20180601
  Receipt Date: 20180601
  Transmission Date: 20180711
  Serious: Yes (Hospitalization)
  Sender: FDA-Public Use
  Company Number: FR-TEVA-2018-FR-900379

PATIENT
  Age: 41 Year
  Sex: Male
  Weight: 72 kg

DRUGS (3)
  1. METHYLPREDNISOLONE. [Concomitant]
     Active Substance: METHYLPREDNISOLONE
     Indication: LUNG ADENOCARCINOMA STAGE III
     Route: 042
     Dates: start: 20180123, end: 20180123
  2. ONDANSETRON [Concomitant]
     Active Substance: ONDANSETRON
     Indication: LUNG ADENOCARCINOMA STAGE III
     Route: 042
     Dates: start: 20180123, end: 20180123
  3. DOCETAXEL. [Suspect]
     Active Substance: DOCETAXEL
     Indication: LUNG ADENOCARCINOMA STAGE III
     Route: 042
     Dates: start: 20180123, end: 20180123

REACTIONS (2)
  - Pneumothorax [Recovered/Resolved]
  - Pleural effusion [Recovering/Resolving]

NARRATIVE: CASE EVENT DATE: 20180209
